FAERS Safety Report 16035615 (Version 1)
Quarter: 2019Q1

REPORT INFORMATION
  Report Type: Spontaneous
  Country: US (occurrence: US)
  Receive Date: 20190305
  Receipt Date: 20190305
  Transmission Date: 20190418
  Serious: No
  Sender: FDA-Public Use
  Company Number: US-SUNOVION-2019SUN000776

PATIENT
  Age: 34 Year
  Sex: Female
  Weight: 54.42 kg

DRUGS (1)
  1. LATUDA [Suspect]
     Active Substance: LURASIDONE HYDROCHLORIDE
     Indication: BIPOLAR DISORDER
     Dosage: 20 MG
     Route: 048

REACTIONS (8)
  - Hyperhidrosis [Unknown]
  - Tremor [Unknown]
  - Dizziness [Unknown]
  - Fatigue [Unknown]
  - Balance disorder [Unknown]
  - Malaise [Unknown]
  - Vertigo [Unknown]
  - Ear infection [Unknown]
